FAERS Safety Report 23621498 (Version 1)
Quarter: 2024Q1

REPORT INFORMATION
  Report Type: Spontaneous
  Country: US (occurrence: US)
  Receive Date: 20240312
  Receipt Date: 20240312
  Transmission Date: 20240410
  Serious: Yes (Other)
  Sender: FDA-Public Use
  Company Number: US-BRISTOL-MYERS SQUIBB COMPANY-2024-037103

PATIENT
  Age: 71 Year
  Sex: Female

DRUGS (2)
  1. POMALYST [Suspect]
     Active Substance: POMALIDOMIDE
     Indication: Plasma cell myeloma
     Dosage: 7 DAYS ON, 7 DAYS OFF
     Route: 048
     Dates: start: 202301
  2. NINLARO [Suspect]
     Active Substance: IXAZOMIB CITRATE
     Indication: Product used for unknown indication
     Dosage: DAYS 1,8,15 OF 28 DAYS CYCLE, TAKE ON A EMPTY STOMACH, 1 HOUR BEFORE OR 2 HOURS AFTER EATING
     Route: 048

REACTIONS (3)
  - Neuropathy peripheral [Unknown]
  - Full blood count decreased [Unknown]
  - Off label use [Unknown]
